FAERS Safety Report 4542447-9 (Version None)
Quarter: 2004Q4

REPORT INFORMATION
  Report Type: 
  Country: None (occurrence: None)
  Receive Date: 20041229
  Receipt Date: 20041208
  Transmission Date: 20050328
  Serious: Yes (Hospitalization, Other)
  Sender: FDA-Public Use
  Company Number: A-US2004-08303

PATIENT
  Age: 46 Year
  Sex: Female

DRUGS (4)
  1. TRACLEER [Suspect]
     Indication: PULMONARY HYPERTENSION
     Dosage: ORAL
     Route: 048
     Dates: start: 20031001, end: 20040801
  2. COUMADIN [Concomitant]
  3. FLOLAN [Concomitant]
  4. SILDENAFIL (SILDENAFIL) [Concomitant]

REACTIONS (34)
  - ABDOMINAL DISTENSION [None]
  - ANOREXIA [None]
  - BLOOD CALCIUM DECREASED [None]
  - CATHETER RELATED INFECTION [None]
  - CHOLELITHIASIS [None]
  - COLON NEOPLASM [None]
  - COMPUTERISED TOMOGRAM ABNORMAL [None]
  - DRUG LEVEL INCREASED [None]
  - DRUG TOXICITY [None]
  - FLATULENCE [None]
  - FOCAL NODULAR HYPERPLASIA [None]
  - HAEMATOCRIT DECREASED [None]
  - HAEMOGLOBIN DECREASED [None]
  - HEPATIC CIRRHOSIS [None]
  - HEPATIC CYST [None]
  - HEPATIC LESION [None]
  - HEPATIC NEOPLASM MALIGNANT [None]
  - HEPATITIS TOXIC [None]
  - HEPATOTOXICITY [None]
  - HYPERGAMMAGLOBULINAEMIA [None]
  - HYPERGLYCAEMIA [None]
  - HYPOALBUMINAEMIA [None]
  - HYPOCALCAEMIA [None]
  - HYPOPROTEINAEMIA [None]
  - INFLAMMATION [None]
  - INTERNATIONAL NORMALISED RATIO INCREASED [None]
  - NAUSEA [None]
  - PLATELET COUNT DECREASED [None]
  - PROTEIN TOTAL DECREASED [None]
  - PROTHROMBIN TIME PROLONGED [None]
  - RENAL DISORDER [None]
  - SPLENOMEGALY [None]
  - THERAPY NON-RESPONDER [None]
  - WEIGHT DECREASED [None]
